FAERS Safety Report 8927717 (Version 2)
Quarter: 2012Q4

REPORT INFORMATION
  Report Type: Report from Study
  Country: DE (occurrence: DE)
  Receive Date: 20121127
  Receipt Date: 20121214
  Transmission Date: 20130627
  Serious: Yes (Death)
  Sender: FDA-Public Use
  Company Number: PHHO2012DE016762

PATIENT
  Age: 74 Year
  Sex: Male
  Weight: 64.5 kg

DRUGS (7)
  1. AFINITOR [Suspect]
     Indication: METASTATIC RENAL CELL CARCINOMA
     Dosage: 10 mg, UNK
     Dates: start: 20111116
  2. MARCUMAR [Suspect]
     Dosage: 1/2 tab
     Route: 048
     Dates: start: 2004
  3. LANTUS [Concomitant]
     Dosage: QD
     Route: 058
     Dates: start: 20120108
  4. TOREM [Concomitant]
     Dosage: 10 mg, QD
     Dates: start: 1973
  5. BISOPROLOL [Concomitant]
     Dosage: 5 mg, QD
     Dates: start: 1973
  6. SIMVASTATIN [Concomitant]
     Dosage: 10 mg
     Dates: start: 2004
  7. ALLOBETA [Concomitant]
     Dosage: 150 mg, QD
     Dates: start: 2006

REACTIONS (1)
  - Gastrointestinal haemorrhage [Fatal]
